FAERS Safety Report 11666813 (Version 1)
Quarter: 2015Q4

REPORT INFORMATION
  Report Type: Spontaneous
  Country: US (occurrence: US)
  Receive Date: 20151027
  Receipt Date: 20151027
  Transmission Date: 20160304
  Serious: No
  Sender: FDA-Public Use
  Company Number: US-ELI_LILLY_AND_COMPANY-US200912001308

PATIENT
  Age: 81 Year
  Sex: Female

DRUGS (2)
  1. PRAMIDOL [Concomitant]
     Indication: PAIN
     Dosage: 50 MG, UNK
  2. FORTEO [Suspect]
     Active Substance: TERIPARATIDE
     Indication: OSTEOPOROSIS
     Dosage: 20 UG, DAILY (1/D)
     Route: 058
     Dates: start: 200905

REACTIONS (4)
  - Haematuria [Unknown]
  - Urine odour abnormal [Unknown]
  - Kidney infection [Unknown]
  - Blood calcium increased [Unknown]

NARRATIVE: CASE EVENT DATE: 20100126
